FAERS Safety Report 15960622 (Version 1)
Quarter: 2019Q1

REPORT INFORMATION
  Report Type: Spontaneous
  Country: US (occurrence: US)
  Receive Date: 20190122
  Receipt Date: 20190122
  Transmission Date: 20190417
  Serious: No
  Sender: FDA-Public Use
  Company Number: None

PATIENT
  Age: 67 Year
  Sex: Female
  Weight: 74.84 kg

DRUGS (1)
  1. PROAIR HFA [Suspect]
     Active Substance: ALBUTEROL SULFATE
     Dosage: ?          OTHER FREQUENCY:EVERY 4-6 HOURS;?
     Route: 055

REACTIONS (2)
  - Dysgeusia [None]
  - Cough [None]

NARRATIVE: CASE EVENT DATE: 20190108
